FAERS Safety Report 24105993 (Version 1)
Quarter: 2024Q3

REPORT INFORMATION
  Report Type: Report from Study
  Country: US (occurrence: None)
  Receive Date: 20240717
  Receipt Date: 20240717
  Transmission Date: 20241017
  Serious: Yes (Other)
  Sender: ASTRAZENECA
  Company Number: 2024A157673

PATIENT
  Age: 34531 Day
  Sex: Male

DRUGS (2)
  1. LYNPARZA [Suspect]
     Active Substance: OLAPARIB
     Indication: Product use in unapproved indication
     Route: 048
  2. ORGOVYX [Concomitant]
     Active Substance: RELUGOLIX
     Dosage: 120 DAILY

REACTIONS (3)
  - Chronic obstructive pulmonary disease [Unknown]
  - Anaemia [Unknown]
  - Renal failure [Unknown]

NARRATIVE: CASE EVENT DATE: 20240709
